FAERS Safety Report 8836579 (Version 1)
Quarter: 2012Q4

REPORT INFORMATION
  Report Type: Spontaneous
  Country: GB (occurrence: None)
  Receive Date: 20121009
  Receipt Date: 20121009
  Transmission Date: 20130627
  Serious: Yes (Other)
  Sender: FDA-Public Use
  Company Number: 2012-UK-0137

PATIENT
  Sex: Female

DRUGS (9)
  1. ABSTRAL [Suspect]
  2. ABSTRAL [Suspect]
  3. EFFENTORA [Suspect]
  4. TRAMADOL [Suspect]
  5. HYDROMORPHONE [Suspect]
  6. ZOMORPH [Suspect]
  7. DUROGESIC [Suspect]
  8. FENTANYL [Suspect]
  9. MEZOLAR [Suspect]

REACTIONS (4)
  - Blood pressure decreased [None]
  - Urticaria [None]
  - Dyspnoea [None]
  - Product adhesion issue [None]
